FAERS Safety Report 4298607-8 (Version None)
Quarter: 2004Q1

REPORT INFORMATION
  Report Type: 
  Country: None (occurrence: None)
  Receive Date: 20040218
  Receipt Date: 20030624
  Transmission Date: 20041129
  Serious: No
  Sender: FDA-Public Use
  Company Number: US-GLAXOSMITHKLINE-A0413816A

PATIENT
  Age: 23 Year
  Sex: Male

DRUGS (2)
  1. PAXIL [Suspect]
     Indication: OBSESSIVE-COMPULSIVE DISORDER
     Dosage: 80MG PER DAY
     Route: 048
     Dates: start: 20010101
  2. DEPAKOTE [Concomitant]

REACTIONS (1)
  - HYPERSOMNIA [None]
